FAERS Safety Report 6676579-6 (Version None)
Quarter: 2010Q2

REPORT INFORMATION
  Report Type: 
  Country: None (occurrence: None)
  Receive Date: 20100412
  Receipt Date: 20100330
  Transmission Date: 20101027
  Serious: Yes (Other)
  Sender: FDA-Public Use
  Company Number: JP-ABBOTT-10P-087-0630323-00

PATIENT
  Age: 57 Year
  Sex: Male

DRUGS (3)
  1. FENOFIBRATE [Suspect]
     Indication: HYPERLIPIDAEMIA
     Route: 048
     Dates: start: 20100101, end: 20100215
  2. ALLOPURINOL [Concomitant]
     Indication: DRUG USE FOR UNKNOWN INDICATION
     Route: 048
     Dates: start: 20100110, end: 20100215
  3. ETHYL ICOSAPENTATE [Concomitant]
     Indication: DRUG USE FOR UNKNOWN INDICATION
     Dates: end: 20100215

REACTIONS (1)
  - HEPATIC FUNCTION ABNORMAL [None]
